FAERS Safety Report 7808969-X (Version None)
Quarter: 2011Q4

REPORT INFORMATION
  Report Type: 
  Country: None (occurrence: None)
  Receive Date: 20111012
  Receipt Date: 20111010
  Transmission Date: 20120403
  Serious: Yes (Hospitalization)
  Sender: FDA-Public Use
  Company Number: US-BRISTOL-MYERS SQUIBB COMPANY-15818388

PATIENT
  Age: 70 Year
  Sex: Female
  Weight: 60 kg

DRUGS (3)
  1. RITUXIMAB [Suspect]
     Indication: CHRONIC LYMPHOCYTIC LEUKAEMIA
     Dosage: DAY 4 EVERY 28 DAYS X 6 CYCLES
     Route: 042
     Dates: start: 20110419, end: 20110502
  2. FLUDARABINE PHOSPHATE [Suspect]
     Indication: CHRONIC LYMPHOCYTIC LEUKAEMIA
     Dosage: DAY 1-3 EVERY DAYS X 6 CYCLES
     Route: 042
     Dates: start: 20110419, end: 20110502
  3. CYTOXAN [Suspect]
     Indication: CHRONIC LYMPHOCYTIC LEUKAEMIA
     Dosage: DAY1-3 EVERY 28 DAYS X CYCLE
     Route: 042
     Dates: start: 20110419, end: 20110502

REACTIONS (4)
  - HEADACHE [None]
  - PYREXIA [None]
  - DIARRHOEA [None]
  - ARTHRALGIA [None]
